FAERS Safety Report 5851488-0 (Version None)
Quarter: 2008Q3

REPORT INFORMATION
  Report Type: 
  Country: None (occurrence: None)
  Receive Date: 20080820
  Receipt Date: 20080813
  Transmission Date: 20090109
  Serious: Yes (Hospitalization)
  Sender: FDA-Public Use
  Company Number: US-WYE-H05608608

PATIENT
  Age: 51 Year
  Sex: Female
  Weight: 79.45 kg

DRUGS (6)
  1. RAPAMUNE [Suspect]
     Indication: PROPHYLAXIS AGAINST TRANSPLANT REJECTION
     Route: 048
     Dates: start: 20080501, end: 20080501
  2. RAPAMUNE [Suspect]
     Dosage: DOSE UNKNOWN
     Route: 048
     Dates: start: 20080601
  3. RENAGEL [Concomitant]
  4. HUMULIN N [Concomitant]
  5. CELLCEPT [Concomitant]
  6. PREDNISONE TAB [Concomitant]

REACTIONS (6)
  - INAPPROPRIATE AFFECT [None]
  - INSOMNIA [None]
  - MOOD ALTERED [None]
  - MUSCLE SPASMS [None]
  - NAUSEA [None]
  - VOMITING [None]
